FAERS Safety Report 9102864 (Version 6)
Quarter: 2014Q1

REPORT INFORMATION
  Report Type: Spontaneous
  Country: US (occurrence: US)
  Receive Date: 20130219
  Receipt Date: 20140221
  Transmission Date: 20141002
  Serious: Yes (Hospitalization, Other)
  Sender: FDA-Public Use
  Company Number: US-009507513-1302USA008529

PATIENT
  Sex: Female

DRUGS (4)
  1. FOSAMAX [Suspect]
     Indication: OSTEOPOROSIS
     Dosage: 10 MG, UNK
     Route: 048
     Dates: start: 19990413
  2. ALENDRONATE SODIUM [Suspect]
     Indication: OSTEOPOROSIS
     Dosage: 70 MG, UNK
     Route: 048
  3. VITAMIN B (UNSPECIFIED) [Concomitant]
     Dosage: UNK
     Dates: start: 1988
  4. ASCORBIC ACID [Concomitant]
     Dosage: UNK
     Dates: start: 1988

REACTIONS (15)
  - Femur fracture [Unknown]
  - Intramedullary rod insertion [Unknown]
  - Bunion operation [Unknown]
  - Toe operation [Unknown]
  - Device failure [Unknown]
  - Device failure [Unknown]
  - Depression [Unknown]
  - Hypertension [Unknown]
  - Laceration [Unknown]
  - Osteopenia [Unknown]
  - Spinal osteoarthritis [Unknown]
  - Nasal congestion [Unknown]
  - Hypercholesterolaemia [Unknown]
  - Tonsillectomy [Unknown]
  - Atrioventricular block first degree [Unknown]
